FAERS Safety Report 18888205 (Version 1)
Quarter: 2021Q1

REPORT INFORMATION
  Report Type: Spontaneous
  Country: NL (occurrence: NL)
  Receive Date: 20210213
  Receipt Date: 20210213
  Transmission Date: 20210420
  Serious: Yes (Life-Threatening, Hospitalization)
  Sender: FDA-Public Use
  Company Number: NL-009507513-2102NLD003264

PATIENT
  Sex: Female

DRUGS (1)
  1. NUVARING [Suspect]
     Active Substance: ETHINYL ESTRADIOL\ETONOGESTREL
     Indication: PRODUCT USED FOR UNKNOWN INDICATION
     Dosage: DOSE: NOT REPORTED, STRENGTH REPORTED AS 15/120MCG PER 24 HOURS, (2,7/11,7MG)
     Dates: start: 20201110

REACTIONS (4)
  - Chest pain [Unknown]
  - Abdominal pain [Unknown]
  - Deep vein thrombosis [Unknown]
  - Pulmonary embolism [Unknown]
